FAERS Safety Report 25981901 (Version 1)
Quarter: 2025Q4

REPORT INFORMATION
  Report Type: Spontaneous
  Country: EU (occurrence: None)
  Receive Date: 20251031
  Receipt Date: 20251031
  Transmission Date: 20260118
  Serious: Yes (Other)
  Sender: ENDO
  Company Number: EU-ENDO USA, INC.-2025-001889

PATIENT
  Sex: Male
  Weight: 119.8 kg

DRUGS (10)
  1. TESTOSTERONE [Suspect]
     Active Substance: TESTOSTERONE
     Indication: Steroid therapy
     Dosage: UNK UNKNOWN, UNKNOWN
     Route: 065
  2. CABOTEGRAVIR\RILPIVIRINE [Suspect]
     Active Substance: CABOTEGRAVIR\RILPIVIRINE
     Indication: Antiretroviral therapy
     Dosage: UNK UNKNOWN, EVERY 2 MONTHS
  3. CABOTEGRAVIR\RILPIVIRINE [Suspect]
     Active Substance: CABOTEGRAVIR\RILPIVIRINE
     Dosage: UNK UNKNOWN, UNKNOWN
  4. CABOTEGRAVIR\RILPIVIRINE [Suspect]
     Active Substance: CABOTEGRAVIR\RILPIVIRINE
     Dosage: UNK UNKNOWN, EVERY 2 MONTHS
  5. CABOTEGRAVIR\RILPIVIRINE [Suspect]
     Active Substance: CABOTEGRAVIR\RILPIVIRINE
     Dosage: UNK UNKNOWN, EVERY 2 MONTHS
  6. CABOTEGRAVIR\RILPIVIRINE [Suspect]
     Active Substance: CABOTEGRAVIR\RILPIVIRINE
     Indication: Antiretroviral therapy
     Dosage: UNK UNKNOWN, UNKNOWN
  7. NANDROLONE [Suspect]
     Active Substance: NANDROLONE
     Indication: Steroid therapy
     Dosage: UNK UNKNOWN, UNKNOWN
     Route: 065
  8. TRENBOLONE [Suspect]
     Active Substance: TRENBOLONE
     Indication: Steroid therapy
     Dosage: UNK UNKNOWN, UNKNOWN
     Route: 065
  9. MULTIVITAMINS NOS [Concomitant]
     Indication: Product used for unknown indication
     Dosage: UNK UNKNOWN, UNKNOWN
     Route: 065
  10. DICLOFENAC [Concomitant]
     Active Substance: DICLOFENAC
     Indication: Product used for unknown indication
     Dosage: UNK UNKNOWN, UNKNOWN (OCCASIONAL)
     Route: 065

REACTIONS (5)
  - Virologic failure [Recovered/Resolved]
  - Multiple-drug resistance [Unknown]
  - Drug interaction [Recovered/Resolved]
  - Drug level decreased [Unknown]
  - Product use in unapproved indication [Unknown]

NARRATIVE: CASE EVENT DATE: 20231116
